FAERS Safety Report 15211184 (Version 1)
Quarter: 2018Q3

REPORT INFORMATION
  Report Type: Spontaneous
  Country: US (occurrence: US)
  Receive Date: 20180729
  Receipt Date: 20180729
  Transmission Date: 20181010
  Serious: No
  Sender: FDA-Public Use
  Company Number: US-JNJFOC-20180719030

PATIENT
  Age: 2 Year
  Sex: Male
  Weight: 10.89 kg

DRUGS (2)
  1. CHILDRENS ZYRTEC [Suspect]
     Active Substance: CETIRIZINE HYDROCHLORIDE
     Indication: ALLERGIC RESPIRATORY SYMPTOM
     Route: 065
     Dates: start: 20180615, end: 20180711
  2. CHILDRENS ZYRTEC [Suspect]
     Active Substance: CETIRIZINE HYDROCHLORIDE
     Route: 065

REACTIONS (2)
  - Reaction to excipient [Recovering/Resolving]
  - Urinary tract infection [Recovering/Resolving]
